FAERS Safety Report 22156552 (Version 1)
Quarter: 2023Q1

REPORT INFORMATION
  Report Type: Spontaneous
  Country: GB (occurrence: GB)
  Receive Date: 20230330
  Receipt Date: 20230330
  Transmission Date: 20230418
  Serious: Yes (Other)
  Sender: FDA-Public Use
  Company Number: None

PATIENT
  Age: 33 Year
  Sex: Female
  Weight: 80 kg

DRUGS (2)
  1. TOPIRAMATE [Suspect]
     Active Substance: TOPIRAMATE
     Indication: Migraine with aura
     Dosage: 50MG 1X25 TAKEN TWICE DAILY ; ;
     Route: 065
     Dates: start: 20230221, end: 20230313
  2. PAROXETINE [Concomitant]
     Active Substance: PAROXETINE
     Indication: Depression
     Dosage: UNKNOWN
     Route: 065
     Dates: start: 20160723

REACTIONS (4)
  - Depressed mood [Not Recovered/Not Resolved]
  - Self-injurious ideation [Not Recovered/Not Resolved]
  - Intentional self-injury [Recovering/Resolving]
  - Depression suicidal [Recovering/Resolving]

NARRATIVE: CASE EVENT DATE: 20230306
